FAERS Safety Report 16780392 (Version 2)
Quarter: 2019Q4

REPORT INFORMATION
  Report Type: Spontaneous
  Country: GB (occurrence: GB)
  Receive Date: 20190906
  Receipt Date: 20191008
  Transmission Date: 20200122
  Serious: Yes (Other)
  Sender: FDA-Public Use
  Company Number: GB-MYLANLABS-2019M1083261

PATIENT
  Age: 37 Year
  Sex: Female

DRUGS (18)
  1. CLOZAPINE MYLAN [Suspect]
     Active Substance: CLOZAPINE
     Dosage: 250 MILLIGRAM
     Route: 065
  2. CLOZAPINE MYLAN [Suspect]
     Active Substance: CLOZAPINE
     Dosage: 450 MILLIGRAM
     Route: 065
  3. CHLORPROMAZINE. [Suspect]
     Active Substance: CHLORPROMAZINE
     Indication: SCHIZOPHRENIA
     Dosage: 250 MILLIGRAM, QD
     Route: 065
  4. CHLORPROMAZINE. [Suspect]
     Active Substance: CHLORPROMAZINE
     Dosage: 350 MILLIGRAM, QD
     Route: 065
  5. AMISULPRIDE [Suspect]
     Active Substance: AMISULPRIDE
     Indication: SCHIZOPHRENIA
     Dosage: UNK
     Route: 065
  6. CLOZAPINE MYLAN [Suspect]
     Active Substance: CLOZAPINE
     Dosage: 600 MILLIGRAM, QD
     Route: 065
  7. HALOPERIDOL. [Concomitant]
     Active Substance: HALOPERIDOL
     Indication: SCHIZOPHRENIA
     Dosage: 5 MILLIGRAM, TID
     Route: 065
  8. DIAZEPAM. [Concomitant]
     Active Substance: DIAZEPAM
     Indication: SCHIZOPHRENIA
     Dosage: 7 MILLIGRAM, QD
     Route: 065
  9. SERTRALINE [Concomitant]
     Active Substance: SERTRALINE HYDROCHLORIDE
     Indication: SCHIZOPHRENIA
     Dosage: 200 MILLIGRAM, QD
     Route: 065
  10. CLOZAPINE MYLAN [Suspect]
     Active Substance: CLOZAPINE
     Dosage: 400 MILLIGRAM, QD
     Route: 065
  11. OLANZAPINE. [Suspect]
     Active Substance: OLANZAPINE
     Indication: SCHIZOPHRENIA
     Dosage: UNK
     Route: 065
  12. TRIFLUOPERAZINE [Suspect]
     Active Substance: TRIFLUOPERAZINE HYDROCHLORIDE
     Indication: SCHIZOPHRENIA
     Dosage: UNK
     Route: 065
  13. QUETIAPINE. [Concomitant]
     Active Substance: QUETIAPINE
     Indication: SCHIZOPHRENIA
     Dosage: 400 MILLIGRAM, QD
     Route: 065
  14. CLOZAPINE MYLAN [Suspect]
     Active Substance: CLOZAPINE
     Dosage: 550 MILLIGRAM, QD
     Route: 065
  15. ZUCLOPENTHIXOL DECANOATE [Concomitant]
     Active Substance: ZUCLOPENTHIXOL DECANOATE
     Indication: SCHIZOPHRENIA
     Dosage: 200 MILLIGRAM, QD
     Route: 065
  16. CLOZAPINE MYLAN [Suspect]
     Active Substance: CLOZAPINE
     Indication: SCHIZOPHRENIA
     Dosage: 150 MILLIGRAM, BID
     Route: 065
     Dates: start: 2005, end: 2005
  17. ARIPRAZOLE [Concomitant]
     Active Substance: ARIPIPRAZOLE
     Indication: SCHIZOPHRENIA
     Dosage: 30 MILLIGRAM, QD
     Route: 065
  18. ZOLPIDEM [Concomitant]
     Active Substance: ZOLPIDEM TARTRATE
     Indication: SCHIZOPHRENIA
     Dosage: 10 MILLIGRAM, QD
     Route: 065

REACTIONS (4)
  - Eosinophilia [Recovered/Resolved]
  - Neutrophilia [Recovered/Resolved]
  - Leukopenia [Recovered/Resolved]
  - Drug ineffective [Recovered/Resolved]

NARRATIVE: CASE EVENT DATE: 2005
